FAERS Safety Report 6604684-9 (Version None)
Quarter: 2010Q1

REPORT INFORMATION
  Report Type: 
  Country: None (occurrence: None)
  Receive Date: 20100226
  Receipt Date: 20100216
  Transmission Date: 20100710
  Serious: Yes (Life-Threatening, Hospitalization, Other)
  Sender: FDA-Public Use
  Company Number: SK-ROCHE-685938

PATIENT
  Age: 55 Year
  Sex: Female

DRUGS (4)
  1. AVASTIN [Suspect]
     Indication: COLORECTAL CANCER
     Route: 065
     Dates: start: 20080601, end: 20090201
  2. IRINOTECAN HCL [Concomitant]
     Indication: COLORECTAL CANCER
     Dosage: RECEIVED SIX CYCLES.
     Dates: start: 20080601, end: 20080801
  3. FLUOROURACIL [Concomitant]
     Indication: COLORECTAL CANCER
     Dosage: RECEIVED SIX CYCLES.
     Dates: start: 20080601, end: 20080801
  4. LEUCOVORIN CALCIUM [Concomitant]
     Indication: COLORECTAL CANCER
     Dosage: RECEIVED SIX CYCLES.
     Dates: start: 20080601, end: 20080801

REACTIONS (11)
  - ACUTE RESPIRATORY DISTRESS SYNDROME [None]
  - BACTERIAL INFECTION [None]
  - CYANOSIS CENTRAL [None]
  - HIGH FREQUENCY ABLATION [None]
  - HYPOVOLAEMIC SHOCK [None]
  - LEUKOCYTOSIS [None]
  - MALIGNANT NEOPLASM PROGRESSION [None]
  - MULTI-ORGAN FAILURE [None]
  - OLIGURIA [None]
  - PERITONEAL HAEMORRHAGE [None]
  - RESPIRATORY FAILURE [None]
